FAERS Safety Report 11397135 (Version 2)
Quarter: 2015Q3

REPORT INFORMATION
  Report Type: Spontaneous
  Country: IT (occurrence: IT)
  Receive Date: 20150819
  Receipt Date: 20150831
  Transmission Date: 20151125
  Serious: Yes (Life-Threatening, Hospitalization)
  Sender: FDA-Public Use
  Company Number: PHHY2015IT098314

PATIENT
  Age: 60 Year
  Sex: Male

DRUGS (4)
  1. EPARINA [Concomitant]
     Indication: VENA CAVA THROMBOSIS
     Route: 065
  2. GEMCITABINE [Suspect]
     Active Substance: GEMCITABINE\GEMCITABINE HYDROCHLORIDE
     Route: 065
  3. ZOLEDRONATE [Suspect]
     Active Substance: ZOLEDRONIC ACID
     Indication: NON-SMALL CELL LUNG CANCER STAGE IV
     Dosage: UNK
     Route: 065
  4. CARBOPLATINUM [Suspect]
     Active Substance: CARBOPLATIN
     Route: 065

REACTIONS (4)
  - Mucosal inflammation [Unknown]
  - Mediastinitis [Unknown]
  - Pulmonary fistula [Unknown]
  - Bronchial fistula [Unknown]
